FAERS Safety Report 16681908 (Version 1)
Quarter: 2019Q3

REPORT INFORMATION
  Report Type: Spontaneous
  Country: US (occurrence: US)
  Receive Date: 20190622
  Receipt Date: 20190622
  Transmission Date: 20191004
  Serious: Yes (Hospitalization)
  Sender: FDA-Public Use
  Company Number: None

PATIENT
  Age: 69 Year
  Sex: Male
  Weight: 72.5 kg

DRUGS (1)
  1. CISPLATIN. [Suspect]
     Active Substance: CISPLATIN
     Dates: end: 20190521

REACTIONS (4)
  - Klebsiella infection [None]
  - Device related infection [None]
  - Abscess [None]
  - Complication associated with device [None]

NARRATIVE: CASE EVENT DATE: 20190531
